FAERS Safety Report 7153732-9 (Version None)
Quarter: 2010Q4

REPORT INFORMATION
  Report Type: 
  Country: None (occurrence: None)
  Receive Date: 20101213
  Receipt Date: 20101207
  Transmission Date: 20110411
  Serious: Yes (Hospitalization, Other)
  Sender: FDA-Public Use
  Company Number: US-ROXANE LABORATORIES, INC.-2010-RO-01591RO

PATIENT
  Age: 23 Year
  Sex: Male

DRUGS (5)
  1. FLUCONAZOLE [Suspect]
     Indication: TINEA VERSICOLOUR
     Dosage: 400 MG
     Route: 048
  2. PREDNISONE [Suspect]
     Indication: STEVENS-JOHNSON SYNDROME
     Dosage: 60 MG
     Route: 048
  3. LIDOCAINE [Suspect]
     Indication: STEVENS-JOHNSON SYNDROME
     Route: 048
  4. DIPHENHYDRAMINE HYDROCHLORIDE [Suspect]
     Indication: STEVENS-JOHNSON SYNDROME
  5. MUPIROCIN [Suspect]
     Indication: STEVENS-JOHNSON SYNDROME
     Route: 061

REACTIONS (2)
  - DEHYDRATION [None]
  - STEVENS-JOHNSON SYNDROME [None]
